FAERS Safety Report 4634389-5 (Version None)
Quarter: 2005Q2

REPORT INFORMATION
  Report Type: 
  Country: None (occurrence: None)
  Receive Date: 20050411
  Receipt Date: 20050326
  Transmission Date: 20051028
  Serious: Yes (Other)
  Sender: FDA-Public Use
  Company Number: 2005037408

PATIENT
  Age: 17 Year
  Sex: Female
  Weight: 77.1115 kg

DRUGS (1)
  1. DEPO-PROVERA [Suspect]
     Dosage: 150 MG(150 MG, EVERY 10-13 WEEKS/FIRST INJECTION), INTRAMUSCULAR
     Route: 030
     Dates: start: 20041018, end: 20041018

REACTIONS (3)
  - ALOPECIA [None]
  - INFECTIOUS MONONUCLEOSIS [None]
  - METRORRHAGIA [None]
